FAERS Safety Report 18849331 (Version 5)
Quarter: 2022Q1

REPORT INFORMATION
  Report Type: Report from Study
  Country: US (occurrence: US)
  Receive Date: 20210205
  Receipt Date: 20220120
  Transmission Date: 20220423
  Serious: No
  Sender: FDA-Public Use
  Company Number: NVSC2021US021488

PATIENT
  Sex: Male

DRUGS (2)
  1. ENTRESTO [Suspect]
     Active Substance: SACUBITRIL\VALSARTAN
     Indication: Product used for unknown indication
     Dosage: UNK (49/51 MG 2PILLS IN THE AM)
     Route: 065
  2. ENTRESTO [Suspect]
     Active Substance: SACUBITRIL\VALSARTAN
     Indication: Cardiac failure chronic

REACTIONS (15)
  - Eczema [Unknown]
  - Erythema [Unknown]
  - Ejection fraction decreased [Unknown]
  - Caffeine allergy [Unknown]
  - Heart rate increased [Unknown]
  - Blood triglycerides increased [Unknown]
  - Weight decreased [Unknown]
  - Dizziness postural [Unknown]
  - Weight increased [Unknown]
  - Hypersensitivity [Unknown]
  - Pruritus [Unknown]
  - Blood pressure systolic decreased [Unknown]
  - Fatigue [Unknown]
  - Incorrect dose administered [Unknown]
  - Product dispensing issue [Unknown]
